FAERS Safety Report 8775197 (Version 2)
Quarter: 2013Q4

REPORT INFORMATION
  Report Type: Spontaneous
  Country: KR (occurrence: KR)
  Receive Date: 20120910
  Receipt Date: 20131106
  Transmission Date: 20140711
  Serious: Yes (Hospitalization)
  Sender: FDA-Public Use
  Company Number: KR-009507513-1209KOR000021

PATIENT
  Sex: 0

DRUGS (1)
  1. COZAAR TABLET (LOSARTAN POTASSIUM) [Suspect]
     Indication: HYPERTENSION
     Route: 048

REACTIONS (1)
  - Renal disorder [Unknown]
